FAERS Safety Report 7488659-6 (Version None)
Quarter: 2011Q2

REPORT INFORMATION
  Report Type: 
  Country: None (occurrence: None)
  Receive Date: 20110518
  Receipt Date: 20110510
  Transmission Date: 20111010
  Serious: Yes (Other)
  Sender: FDA-Public Use
  Company Number: A0926978A

PATIENT
  Sex: Female

DRUGS (1)
  1. VERDESO [Suspect]
     Route: 061

REACTIONS (1)
  - RASH GENERALISED [None]
